FAERS Safety Report 9915876 (Version 1)
Quarter: 2014Q1

REPORT INFORMATION
  Report Type: Spontaneous
  Country: FR (occurrence: FR)
  Receive Date: 20140221
  Receipt Date: 20140221
  Transmission Date: 20141002
  Serious: Yes (Life-Threatening, Hospitalization)
  Sender: FDA-Public Use
  Company Number: FR-TEVA-462919ISR

PATIENT
  Age: 64 Year
  Sex: Female

DRUGS (3)
  1. DOXORUBICINE TEVA [Suspect]
     Indication: PLASMA CELL MYELOMA
     Route: 042
     Dates: start: 20061127, end: 20061130
  2. VELCADE 3.5 MG [Suspect]
     Indication: PLASMA CELL MYELOMA
     Dosage: 2.1 MILLIGRAM DAILY; 2.1 MG ON 27-NOV-2006 THEN ON 30-NOV-2006
     Route: 042
     Dates: start: 20061127, end: 20061204
  3. DEXAMETHASONE [Concomitant]
     Indication: PLASMA CELL MYELOMA

REACTIONS (10)
  - Bicytopenia [Recovered/Resolved]
  - Leukopenia [Recovered/Resolved with Sequelae]
  - Nausea [Unknown]
  - Vomiting [Unknown]
  - Hypokalaemia [Unknown]
  - Inflammation [Unknown]
  - Hypoalbuminaemia [Unknown]
  - Stomatitis [Unknown]
  - Eating disorder [Unknown]
  - Thrombocytopenia [Unknown]
